FAERS Safety Report 8765920 (Version 1)
Quarter: 2012Q4

REPORT INFORMATION
  Report Type: 
  Country: CA (occurrence: CA)
  Receive Date: 20120904
  Receipt Date: 20120904
  Transmission Date: 20130627
  Serious: Yes (Hospitalization, Other)
  Sender: FDA-Public Use
  Company Number: CA-PFIZER INC-2012212505

PATIENT
  Age: 41 Year
  Sex: Female

DRUGS (17)
  1. CLINDAMYCIN HCL [Suspect]
     Indication: ENDODONTIC PROCEDURE
     Dosage: UNK
     Dates: end: 20120328
  2. PROGRAF [Suspect]
     Indication: RENAL TRANSPLANT
     Dosage: 1 mg in the morning + 0.5 mg in the evening
     Dates: start: 20020125
  3. WARFARIN [Interacting]
     Indication: ATRIAL FIBRILLATION
     Dosage: UNK
     Dates: start: 201203
  4. WARFARIN [Interacting]
     Dosage: 2.5 mg, 1x/day
  5. METOPROLOL [Concomitant]
     Dosage: UNK
  6. PREDNISONE [Concomitant]
     Dosage: UNK
  7. RAMIPRIL [Concomitant]
     Dosage: UNK
  8. NIFEDIPINE XL [Concomitant]
     Dosage: UNK
  9. ASPIRIN [Concomitant]
     Dosage: UNK
  10. CALCIUM CARBONATE [Concomitant]
     Dosage: UNK
  11. SODIUM BICARBONATE [Concomitant]
     Dosage: UNK
  12. IBUPROFEN [Concomitant]
     Dosage: UNK
  13. LOSEC [Concomitant]
     Dosage: UNK
  14. CELEXA [Concomitant]
     Dosage: UNK
  15. FUROSEMIDE [Concomitant]
     Dosage: 40 mg, x2 doses
     Route: 042
  16. AMOXICILLIN [Concomitant]
     Dosage: UNK
  17. SYNTHROID [Concomitant]
     Dosage: UNK

REACTIONS (20)
  - Drug interaction [Recovered/Resolved]
  - Mallory-Weiss syndrome [Unknown]
  - Focal segmental glomerulosclerosis [Unknown]
  - Cardiac pacemaker insertion [Unknown]
  - Pulmonary hypertension [Unknown]
  - Cardiac failure congestive [Unknown]
  - Renal failure acute [Unknown]
  - Uterine leiomyoma [Unknown]
  - Hepatitis acute [Unknown]
  - Cystitis klebsiella [Unknown]
  - Non-alcoholic steatohepatitis [Unknown]
  - Coagulopathy [Unknown]
  - Sleep apnoea syndrome [Unknown]
  - Dyslipidaemia [Unknown]
  - Cardiac valve disease [Unknown]
  - Hypothyroidism [Unknown]
  - Gastrooesophageal reflux disease [Unknown]
  - Thrombocytopenia [Unknown]
  - Depression [Unknown]
  - Hypocalcaemia [Unknown]
